FAERS Safety Report 12083674 (Version 1)
Quarter: 2016Q1

REPORT INFORMATION
  Report Type: Spontaneous
  Country: JP (occurrence: JP)
  Receive Date: 20160217
  Receipt Date: 20160217
  Transmission Date: 20160526
  Serious: Yes (Hospitalization)
  Sender: FDA-Public Use
  Company Number: JP-PFIZER INC-2016088288

PATIENT
  Sex: Male

DRUGS (1)
  1. LYRICA [Suspect]
     Active Substance: PREGABALIN
     Dosage: 100 MG, DAILY (25 MG IN THE MORNING AND 75 MG BEFORE BED TIME)
     Route: 048

REACTIONS (3)
  - Chronic obstructive pulmonary disease [Unknown]
  - Drug ineffective [Unknown]
  - Pneumonia [Unknown]
